FAERS Safety Report 9668404 (Version 4)
Quarter: 2014Q1

REPORT INFORMATION
  Report Type: Report from Study
  Country: US (occurrence: US)
  Receive Date: 20131104
  Receipt Date: 20140313
  Transmission Date: 20141002
  Serious: Yes (Hospitalization)
  Sender: FDA-Public Use
  Company Number: US-ROCHE-1296097

PATIENT
  Age: 56 Year
  Sex: Female

DRUGS (8)
  1. ZELBORAF [Suspect]
     Indication: METASTATIC MALIGNANT MELANOMA
     Route: 065
     Dates: start: 201309, end: 20131016
  2. ZELBORAF [Suspect]
     Indication: SKIN CANCER
     Dosage: NEW DOSE WHEN SHE RESUMES
     Route: 065
  3. ZELBORAF [Suspect]
     Route: 065
  4. ZELBORAF [Suspect]
     Route: 065
  5. ZELBORAF [Suspect]
     Route: 065
  6. FOLIC ACID [Concomitant]
  7. VITAMIN B12 [Concomitant]
  8. PROTONIX (UNITED STATES) [Concomitant]

REACTIONS (17)
  - Pyrexia [Recovered/Resolved]
  - Urinary tract infection [Recovered/Resolved]
  - Platelet count decreased [Recovered/Resolved]
  - Joint range of motion decreased [Recovered/Resolved]
  - Joint stiffness [Recovered/Resolved]
  - Rash [Not Recovered/Not Resolved]
  - Mass [Not Recovered/Not Resolved]
  - Erythema [Not Recovered/Not Resolved]
  - Blood potassium decreased [Recovered/Resolved]
  - Haemorrhage [Not Recovered/Not Resolved]
  - Alopecia [Not Recovered/Not Resolved]
  - Pruritus [Recovered/Resolved]
  - Hepatic enzyme increased [Unknown]
  - Arthralgia [Not Recovered/Not Resolved]
  - Arthritis [Not Recovered/Not Resolved]
  - Joint swelling [Not Recovered/Not Resolved]
  - Platelet count decreased [Unknown]
